FAERS Safety Report 19929978 (Version 4)
Quarter: 2024Q3

REPORT INFORMATION
  Report Type: Spontaneous
  Country: PL (occurrence: PL)
  Receive Date: 20211007
  Receipt Date: 20240910
  Transmission Date: 20241016
  Serious: Yes (Hospitalization, Other)
  Sender: EMD SERONO INC
  Company Number: PL-ROCHE-2887624

PATIENT
  Age: 62 Year
  Sex: Male
  Weight: 98 kg

DRUGS (28)
  1. METFORMIN [Suspect]
     Active Substance: METFORMIN HYDROCHLORIDE
     Indication: Product used for unknown indication
     Dosage: 850 MG, THRICE A DAY
     Route: 065
  2. ROSUVASTATIN [Suspect]
     Active Substance: ROSUVASTATIN\ROSUVASTATIN CALCIUM
     Indication: Hypertension
     Dosage: 10 MG, ONCE A DAY (IN THE EVENING)
     Route: 065
  3. ROSUVASTATIN [Suspect]
     Active Substance: ROSUVASTATIN\ROSUVASTATIN CALCIUM
     Indication: Carotid arteriosclerosis
     Dosage: 40 MILLIGRAM
     Route: 065
  4. PANTOPRAZOLE [Suspect]
     Active Substance: PANTOPRAZOLE
     Indication: Helicobacter gastritis
     Dosage: 20 MG ONCE A DAY (IN THE MORNING
     Route: 065
  5. CLOPIDOGREL [Suspect]
     Active Substance: CLOPIDOGREL BISULFATE
     Indication: Postoperative care
     Dosage: 75 MILLIGRAM
  6. ASPIRIN [Suspect]
     Active Substance: ASPIRIN
     Indication: Coronary artery bypass
     Dosage: FREQUENCY TEXT: IN EVENING?75 MG
     Route: 065
  7. ASPIRIN [Suspect]
     Active Substance: ASPIRIN
     Indication: Hypertension
  8. ASPIRIN [Suspect]
     Active Substance: ASPIRIN
     Indication: Postoperative care
  9. ASPIRIN [Suspect]
     Active Substance: ASPIRIN
     Indication: Carotid arteriosclerosis
  10. ASPIRIN [Suspect]
     Active Substance: ASPIRIN
     Indication: Carotid arteriosclerosis
  11. ASPIRIN [Suspect]
     Active Substance: ASPIRIN
     Indication: Postoperative care
  12. ASPIRIN [Suspect]
     Active Substance: ASPIRIN
     Indication: Coronary artery bypass
  13. ESOMEPRAZOLE MAGNESIUM [Suspect]
     Active Substance: ESOMEPRAZOLE MAGNESIUM
     Indication: Antiplatelet therapy
     Dosage: 20 MG (GASTRO-RESISTANT TABLET)
  14. ESOMEPRAZOLE MAGNESIUM [Suspect]
     Active Substance: ESOMEPRAZOLE MAGNESIUM
     Indication: Renal failure
  15. HYDROCHLOROTHIAZIDE [Suspect]
     Active Substance: HYDROCHLOROTHIAZIDE
     Indication: Product used for unknown indication
     Dosage: FREQUENCY TEXT: IN MORNING?12.5 MILLIGRAM ONCE A DAY
     Route: 065
  16. TELMISARTAN [Suspect]
     Active Substance: TELMISARTAN
     Indication: Product used for unknown indication
     Dosage: 80 MG, ONCE A DAY IN MORNING
     Route: 065
  17. FENOBIBRATE [Suspect]
     Active Substance: FENOFIBRATE
     Indication: Product used for unknown indication
     Dosage: 215 MG, ONCE A DAY (IN THE MORNING)
     Route: 065
  18. CARVEDILOL [Suspect]
     Active Substance: CARVEDILOL
     Indication: Product used for unknown indication
     Dosage: 12.5 MG, ONCE A DAY
     Route: 065
  19. CARVEDILOL [Suspect]
     Active Substance: CARVEDILOL
     Dosage: 12.5 MG, TWICE A DAY
     Route: 065
  20. PANTOPRAZOLE SODIUM [Suspect]
     Active Substance: PANTOPRAZOLE SODIUM
     Indication: Helicobacter gastritis
     Dosage: 2X40 MG
  21. TRIMETAZIDINE [Suspect]
     Active Substance: TRIMETAZIDINE
     Indication: Product used for unknown indication
     Dosage: 20 MG, TWICE A DAY (IN THE MORNING AND EVENING)
     Route: 065
  22. LINAGLIPTIN [Suspect]
     Active Substance: LINAGLIPTIN
     Indication: Product used for unknown indication
     Dosage: 5 MG, 1X/DAY
  23. LINAGLIPTIN [Suspect]
     Active Substance: LINAGLIPTIN
     Indication: Product used for unknown indication
     Dosage: 5 MG, 1X/DAY (QD)
     Route: 065
  24. FLUTICASONE PROPIONATE\SALMETEROL XINAFOATE [Suspect]
     Active Substance: FLUTICASONE PROPIONATE\SALMETEROL XINAFOATE
     Indication: Product used for unknown indication
     Dosage: 250 UG PLUS 50 UG INHALATION
     Route: 055
  25. AMLODIPINE\RAMIPRIL [Suspect]
     Active Substance: AMLODIPINE\RAMIPRIL
     Indication: Coronary artery disease
     Dosage: 10 MG
  26. AMLODIPINE\RAMIPRIL [Suspect]
     Active Substance: AMLODIPINE\RAMIPRIL
     Indication: Cardiac failure
  27. BISOPROLOL [Suspect]
     Active Substance: BISOPROLOL\BISOPROLOL FUMARATE
     Indication: Coronary artery disease
     Dosage: 8 MG
  28. BISOPROLOL [Suspect]
     Active Substance: BISOPROLOL\BISOPROLOL FUMARATE
     Indication: Heart failure with reduced ejection fraction
     Dosage: 7.5 MG

REACTIONS (59)
  - Asthenia [Unknown]
  - Systolic dysfunction [Unknown]
  - Pericardial effusion [Unknown]
  - Dyspnoea at rest [Unknown]
  - Oedema peripheral [Unknown]
  - Carotid artery stenosis [Unknown]
  - Palpitations [Unknown]
  - Diastolic dysfunction [Unknown]
  - Coronary artery disease [Unknown]
  - Angiopathy [Unknown]
  - Angiopathy [Unknown]
  - Occult blood [Unknown]
  - Acute kidney injury [Unknown]
  - Acute myocardial infarction [Unknown]
  - Ventricular hypokinesia [Unknown]
  - Ventricular hypokinesia [Unknown]
  - Chronic kidney disease [Unknown]
  - Chronic kidney disease [Unknown]
  - Rales [Unknown]
  - Rales [Unknown]
  - Tricuspid valve incompetence [Unknown]
  - Tricuspid valve incompetence [Unknown]
  - Carotid arteriosclerosis [Unknown]
  - Aortic valve incompetence [Unknown]
  - Left ventricular hypertrophy [Unknown]
  - Pericardial effusion [Unknown]
  - Hepatojugular reflux [Unknown]
  - Mitral valve incompetence [Unknown]
  - Tricuspid valve incompetence [Unknown]
  - Mitral valve incompetence [Unknown]
  - Helicobacter gastritis [Unknown]
  - Electrocardiogram Q wave abnormal [Unknown]
  - Hyperlipidaemia [Unknown]
  - Heart failure with reduced ejection fraction [Unknown]
  - Carotid arteriosclerosis [Unknown]
  - Intestinal obstruction [Unknown]
  - Electrocardiogram QT prolonged [Unknown]
  - Ventricular tachycardia [Unknown]
  - Supraventricular tachycardia [Unknown]
  - Syncope [Unknown]
  - Fatigue [Unknown]
  - Anaemia macrocytic [Unknown]
  - Ventricular arrhythmia [Unknown]
  - Hypotension [Unknown]
  - Left ventricular dysfunction [Unknown]
  - Bundle branch block left [Unknown]
  - Ejection fraction decreased [Unknown]
  - Stenosis [Unknown]
  - Cardiomegaly [Unknown]
  - Mitral valve disease [Unknown]
  - Rales [Unknown]
  - Pulmonary valve disease [Unknown]
  - Pericardial disease [Unknown]
  - Skin lesion [Unknown]
  - Physical examination abnormal [Unknown]
  - Joint swelling [Unknown]
  - Echocardiogram abnormal [Unknown]
  - Cardiac discomfort [Unknown]
  - Ill-defined disorder [Unknown]

NARRATIVE: CASE EVENT DATE: 20190918
